FAERS Safety Report 5609671-5 (Version None)
Quarter: 2008Q1

REPORT INFORMATION
  Report Type: 
  Country: None (occurrence: None)
  Receive Date: 20080131
  Receipt Date: 20080129
  Transmission Date: 20080703
  Serious: Yes (Death, Hospitalization)
  Sender: FDA-Public Use
  Company Number: B0503670A

PATIENT
  Age: 61 Year
  Sex: Female
  Weight: 57.1 kg

DRUGS (6)
  1. LAPATINIB [Suspect]
     Dosage: 1250MG PER DAY
     Route: 048
     Dates: start: 20071002, end: 20080114
  2. CAPECITABINE [Suspect]
     Dosage: 1500MG PER DAY
     Route: 048
     Dates: start: 20071002
  3. OMEPRAZOLE [Concomitant]
     Dosage: 20MG PER DAY
     Route: 048
     Dates: start: 20060222
  4. ATACAND [Concomitant]
     Indication: CARDIAC FAILURE
     Dosage: 8MG PER DAY
     Route: 048
     Dates: start: 20070824
  5. BETAPRED [Concomitant]
     Indication: ILL-DEFINED DISORDER
     Dosage: 1MG PER DAY
     Route: 048
     Dates: start: 20070227
  6. LEVOTHYROXINE SODIUM [Concomitant]
     Indication: HYPOTHYROIDISM
     Dosage: 25UG ALTERNATE DAYS
     Route: 048
     Dates: start: 20020101

REACTIONS (6)
  - ABDOMINAL DISTENSION [None]
  - ASCITES [None]
  - FATIGUE [None]
  - GENERAL PHYSICAL HEALTH DETERIORATION [None]
  - NAUSEA [None]
  - VOMITING [None]
